FAERS Safety Report 7432308-X (Version None)
Quarter: 2011Q2

REPORT INFORMATION
  Report Type: 
  Country: None (occurrence: None)
  Receive Date: 20110422
  Receipt Date: 20110328
  Transmission Date: 20111010
  Serious: Yes (Other)
  Sender: FDA-Public Use
  Company Number: US-PFIZER INC-US-WYE-H15055210

PATIENT

DRUGS (2)
  1. EFFEXOR XR [Suspect]
     Dosage: UNK
     Route: 048
     Dates: start: 20070101, end: 20090101
  2. SERTRALINE HYDROCHLORIDE [Suspect]
     Dosage: UNK
     Route: 065
     Dates: start: 20070101, end: 20091201

REACTIONS (8)
  - LOSS OF LIBIDO [None]
  - DRUG WITHDRAWAL SYNDROME [None]
  - IMPULSIVE BEHAVIOUR [None]
  - ANXIETY [None]
  - PARAESTHESIA [None]
  - SOMNOLENCE [None]
  - DIZZINESS [None]
  - DRUG DEPENDENCE [None]
